FAERS Safety Report 6262374-9 (Version None)
Quarter: 2009Q3

REPORT INFORMATION
  Report Type: 
  Country: None (occurrence: None)
  Receive Date: 20090709
  Receipt Date: 20090707
  Transmission Date: 20100115
  Serious: Yes (Death, Other)
  Sender: FDA-Public Use
  Company Number: PHHY2009BR27774

PATIENT
  Sex: Female

DRUGS (4)
  1. STALEVO 100 [Suspect]
     Indication: PARKINSON'S DISEASE
     Dosage: 50 MG, QD
     Route: 048
  2. STALEVO 100 [Suspect]
     Dosage: 100 MG, QD
     Route: 048
  3. NIAR [Concomitant]
     Indication: PARKINSON'S DISEASE
     Dosage: 5 MG 2 TABLETS DAILY
     Route: 048
  4. NIMODIPINE [Concomitant]
     Dosage: 30 MG 2TABLETS DAILY
     Route: 048
     Dates: start: 20070101

REACTIONS (5)
  - INFLUENZA [None]
  - NASAL CONGESTION [None]
  - PARKINSON'S DISEASE [None]
  - RENAL FAILURE [None]
  - RHINORRHOEA [None]
